FAERS Safety Report 5033884-7 (Version None)
Quarter: 2006Q2

REPORT INFORMATION
  Report Type: 
  Country: None (occurrence: None)
  Receive Date: 20060623
  Receipt Date: 20060314
  Transmission Date: 20061013
  Serious: Yes (Other)
  Sender: FDA-Public Use
  Company Number: US-AVENTIS-200612591US

PATIENT
  Sex: Female

DRUGS (11)
  1. LANTUS [Suspect]
     Indication: DIABETES MELLITUS NON-INSULIN-DEPENDENT
     Dosage: DOSE UNIT: UNITS
  2. LANTUS [Suspect]
     Dosage: DOSE UNIT: UNITS
  3. LANTUS [Suspect]
     Dosage: DOSE UNIT: UNITS
  4. LANTUS [Suspect]
     Dosage: DOSE UNIT: UNITS
  5. GLUCOPHAGE [Concomitant]
     Dosage: DOSE: UNK
  6. PRANDIN [Concomitant]
     Dosage: DOSE: UNK
  7. DIOVAN [Concomitant]
     Dosage: DOSE: UNK
  8. VERAPAMIL [Concomitant]
     Dosage: DOSE: UNK
  9. ALDACTONE [Concomitant]
     Dosage: DOSE: UNK
  10. COUMADIN [Concomitant]
     Dosage: DOSE: UNK
  11. LASIX [Concomitant]
     Dosage: DOSE: UNK

REACTIONS (6)
  - ASTHENIA [None]
  - BLOOD GLUCOSE INCREASED [None]
  - BLOOD POTASSIUM INCREASED [None]
  - BLOOD PRESSURE DECREASED [None]
  - DIZZINESS [None]
  - HYPERHIDROSIS [None]
